FAERS Safety Report 13872456 (Version 4)
Quarter: 2018Q3

REPORT INFORMATION
  Report Type: Spontaneous
  Country: US (occurrence: US)
  Receive Date: 20170816
  Receipt Date: 20180808
  Transmission Date: 20181010
  Serious: No
  Sender: FDA-Public Use
  Company Number: US-PFIZER INC-2017352765

PATIENT
  Age: 67 Year
  Sex: Female
  Weight: 74 kg

DRUGS (14)
  1. DOCETAXEL SANDOZ [Suspect]
     Active Substance: DOCETAXEL
     Indication: BREAST CANCER FEMALE
     Dosage: 138 MG, EVERY 3 WEEKS, SIX CYCLES
     Dates: start: 20150120
  2. HERCEPTIN [Concomitant]
     Active Substance: TRASTUZUMAB
     Indication: CHEMOTHERAPY
     Dosage: UNK UNK, CYCLIC (06 CYCLES)
  3. VITAMIN B12 [Concomitant]
     Active Substance: CYANOCOBALAMIN
     Dosage: UNK
     Dates: start: 2001
  4. DOCETAXEL SANDOZ [Suspect]
     Active Substance: DOCETAXEL
     Dosage: 146 MG, EVERY 3 WEEKS, SIX CYCLES
     Dates: end: 20150513
  5. VITAMIN K2 [Concomitant]
     Active Substance: MENAQUINONE 6
     Dosage: UNK
     Dates: start: 2001
  6. PRAVASTATIN. [Concomitant]
     Active Substance: PRAVASTATIN
     Dosage: UNK
     Dates: start: 20140101
  7. ARIMIDEX [Concomitant]
     Active Substance: ANASTROZOLE
     Indication: HORMONE REPLACEMENT THERAPY
     Dosage: UNK
     Dates: start: 20150529
  8. DOCETAXEL. [Suspect]
     Active Substance: DOCETAXEL
     Dosage: 146 MG, EVERY 3 WEEKS, SIX CYCLES
     Dates: end: 20150513
  9. CARBOPLATIN. [Concomitant]
     Active Substance: CARBOPLATIN
     Indication: CHEMOTHERAPY
     Dosage: UNK UNK, CYCLIC (06 CYCLES)
  10. IRON [Concomitant]
     Active Substance: IRON
     Dosage: UNK
     Dates: start: 2001
  11. KRILL OIL [Concomitant]
     Active Substance: DIETARY SUPPLEMENT
     Dosage: UNK
     Dates: start: 2001
  12. DOCETAXEL. [Suspect]
     Active Substance: DOCETAXEL
     Indication: BREAST CANCER FEMALE
     Dosage: 138 MG, EVERY 3 WEEKS, SIX CYCLES
     Dates: start: 20150120
  13. PARAPLATIN [Concomitant]
     Active Substance: CARBOPLATIN
     Indication: CHEMOTHERAPY
     Dosage: UNK
  14. FOLIC ACID. [Concomitant]
     Active Substance: FOLIC ACID
     Dosage: UNK
     Dates: start: 2001

REACTIONS (5)
  - Hair colour changes [Not Recovered/Not Resolved]
  - Hair texture abnormal [Not Recovered/Not Resolved]
  - Alopecia [Not Recovered/Not Resolved]
  - Madarosis [Not Recovered/Not Resolved]
  - Hair disorder [Not Recovered/Not Resolved]

NARRATIVE: CASE EVENT DATE: 20151113
